FAERS Safety Report 7452349-6 (Version None)
Quarter: 2011Q2

REPORT INFORMATION
  Report Type: 
  Country: None (occurrence: None)
  Receive Date: 20110502
  Receipt Date: 20110422
  Transmission Date: 20111010
  Serious: Yes (Hospitalization)
  Sender: FDA-Public Use
  Company Number: US-JNJFOC-20110410661

PATIENT
  Age: 2 Year
  Sex: Female
  Weight: 11.79 kg

DRUGS (2)
  1. CHILDREN'S TYLENOL SUSPENSION [Suspect]
     Indication: ABDOMINAL PAIN UPPER
     Route: 048
  2. CHILDREN'S TYLENOL SUSPENSION [Suspect]
     Indication: TOOTHACHE
     Route: 048

REACTIONS (1)
  - PANCREATITIS [None]
